FAERS Safety Report 17025480 (Version 1)
Quarter: 2019Q4

REPORT INFORMATION
  Report Type: Report from Study
  Country: US (occurrence: US)
  Receive Date: 20191113
  Receipt Date: 20191113
  Transmission Date: 20200122
  Serious: Yes (Death, Hospitalization, Other)
  Sender: FDA-Public Use
  Company Number: PHHO2015US008766

PATIENT
  Age: 88 Year
  Sex: Male
  Weight: 84.9 kg

DRUGS (2)
  1. ZORTRESS [Suspect]
     Active Substance: EVEROLIMUS
     Indication: NON-HODGKIN^S LYMPHOMA
     Dosage: 5 MG, QD
     Route: 048
     Dates: start: 20090327, end: 20090506
  2. SORAFENIB [Suspect]
     Active Substance: SORAFENIB
     Indication: NON-HODGKIN^S LYMPHOMA
     Dosage: 200 MG, BID
     Route: 048
     Dates: start: 20090327, end: 20090506

REACTIONS (3)
  - Platelet count decreased [Unknown]
  - Malignant neoplasm progression [Fatal]
  - Confusional state [Unknown]

NARRATIVE: CASE EVENT DATE: 20090513
